FAERS Safety Report 6996147-6 (Version None)
Quarter: 2010Q3

REPORT INFORMATION
  Report Type: 
  Country: None (occurrence: None)
  Receive Date: 20100918
  Receipt Date: 20090108
  Transmission Date: 20110219
  Serious: No
  Sender: FDA-Public Use
  Company Number: US-WYE-H07650809

PATIENT
  Age: 57 Year
  Sex: Female
  Weight: 61.29 kg

DRUGS (1)
  1. PREMPRO [Suspect]
     Indication: HORMONE REPLACEMENT THERAPY
     Dosage: ^LOWEST DOSE^
     Route: 048
     Dates: start: 20090106

REACTIONS (1)
  - POOR QUALITY SLEEP [None]
